FAERS Safety Report 24440821 (Version 2)
Quarter: 2024Q4

REPORT INFORMATION
  Report Type: Report from Study
  Country: DE (occurrence: DE)
  Receive Date: 20241016
  Receipt Date: 20241017
  Transmission Date: 20250115
  Serious: No
  Sender: ROCHE
  Company Number: DE-ROCHE-3391100

PATIENT
  Age: 8 Year
  Sex: Male
  Weight: 38.0 kg

DRUGS (7)
  1. EMICIZUMAB [Suspect]
     Active Substance: EMICIZUMAB
     Indication: Haemophilia A with anti factor VIII
     Route: 058
     Dates: start: 20211004, end: 20211101
  2. EMICIZUMAB [Suspect]
     Active Substance: EMICIZUMAB
     Route: 058
     Dates: start: 20211108
  3. HAEMATE [Concomitant]
     Active Substance: ANTIHEMOPHILIC FACTOR HUMAN
     Route: 042
     Dates: start: 201608, end: 201809
  4. NUWIQ [Concomitant]
     Active Substance: ANTIHEMOPHILIC FACTOR, HUMAN RECOMBINANT
     Route: 042
     Dates: start: 201809, end: 20210409
  5. NUWIQ [Concomitant]
     Active Substance: ANTIHEMOPHILIC FACTOR, HUMAN RECOMBINANT
     Route: 042
     Dates: start: 20210412, end: 20210505
  6. ELOCTA [Concomitant]
     Active Substance: EFMOROCTOCOG ALFA
     Route: 042
     Dates: start: 20211004, end: 20211004
  7. ELOCTA [Concomitant]
     Active Substance: EFMOROCTOCOG ALFA
     Route: 042
     Dates: start: 20211005

REACTIONS (2)
  - Skin abrasion [Recovered/Resolved]
  - Fall [Unknown]

NARRATIVE: CASE EVENT DATE: 20230423
